FAERS Safety Report 6385208-0 (Version None)
Quarter: 2009Q4

REPORT INFORMATION
  Report Type: 
  Country: None (occurrence: None)
  Receive Date: 20091002
  Receipt Date: 20081119
  Transmission Date: 20100525
  Serious: No
  Sender: FDA-Public Use
  Company Number: US-ASTRAZENECA-2008UW14838

PATIENT
  Age: 58 Year
  Sex: Female
  Weight: 103 kg

DRUGS (6)
  1. ARIMIDEX [Suspect]
     Indication: BREAST CANCER
     Route: 048
     Dates: start: 20060622, end: 20081028
  2. TRAMADOL HCL [Concomitant]
  3. BENICAR [Concomitant]
  4. XANAX [Concomitant]
  5. CARVEDILOL [Concomitant]
  6. FEMARA [Concomitant]
     Route: 048
     Dates: start: 20050802, end: 20060622

REACTIONS (4)
  - ARTHRALGIA [None]
  - ARTHROPATHY [None]
  - HEART RATE INCREASED [None]
  - WEIGHT INCREASED [None]
